FAERS Safety Report 4791819-6 (Version None)
Quarter: 2005Q4

REPORT INFORMATION
  Report Type: 
  Country: None (occurrence: None)
  Receive Date: 20051007
  Receipt Date: 20050929
  Transmission Date: 20060501
  Serious: Yes (Death)
  Sender: FDA-Public Use
  Company Number: US-JNJFOC-20051000552

PATIENT
  Sex: Female

DRUGS (3)
  1. TOPAMAX [Suspect]
     Indication: EPILEPSY
  2. TEGRETOL [Concomitant]
  3. KEPPRA [Concomitant]

REACTIONS (1)
  - CONVULSION [None]
